FAERS Safety Report 17446128 (Version 2)
Quarter: 2020Q1

REPORT INFORMATION
  Report Type: Spontaneous
  Country: US (occurrence: US)
  Receive Date: 20200221
  Receipt Date: 20200320
  Transmission Date: 20200409
  Serious: No
  Sender: FDA-Public Use
  Company Number: US-SA-2020SA037683

PATIENT
  Sex: Male

DRUGS (2)
  1. AUBAGIO [Suspect]
     Active Substance: TERIFLUNOMIDE
     Indication: MULTIPLE SCLEROSIS
     Dosage: 14 MG, QD
     Route: 048
     Dates: start: 20160609
  2. AUBAGIO [Suspect]
     Active Substance: TERIFLUNOMIDE
     Dosage: UNK

REACTIONS (3)
  - Blood urine present [Unknown]
  - Abdominal distension [Unknown]
  - Abdominal discomfort [Unknown]
